FAERS Safety Report 4956498-3 (Version None)
Quarter: 2006Q1

REPORT INFORMATION
  Report Type: 
  Country: None (occurrence: None)
  Receive Date: 20060329
  Receipt Date: 20050801
  Transmission Date: 20060701
  Serious: Yes (Hospitalization)
  Sender: FDA-Public Use
  Company Number: US-MERCK-0508USA00826

PATIENT
  Age: 52 Year
  Sex: Male
  Weight: 94 kg

DRUGS (16)
  1. VIOXX [Suspect]
     Indication: ARTHRALGIA
     Route: 048
     Dates: start: 20010801, end: 20030801
  2. VIOXX [Suspect]
     Route: 048
     Dates: start: 20010801, end: 20030801
  3. VIOXX [Suspect]
     Route: 048
     Dates: start: 20010801, end: 20030801
  4. VIOXX [Suspect]
     Indication: ARTHRITIS
     Route: 048
     Dates: start: 20010801, end: 20030801
  5. VIOXX [Suspect]
     Route: 048
     Dates: start: 20010801, end: 20030801
  6. VIOXX [Suspect]
     Route: 048
     Dates: start: 20010801, end: 20030801
  7. FLUOXETINE [Concomitant]
     Route: 065
  8. RISPERDAL [Concomitant]
     Route: 065
  9. ZOCOR [Concomitant]
     Route: 065
  10. BENADRYL [Concomitant]
     Route: 065
  11. TEMAZEPAM [Concomitant]
     Route: 065
  12. ATENOLOL [Concomitant]
     Route: 065
  13. HYDROCODONE HYDROCHLORIDE [Concomitant]
     Route: 065
  14. ASPIRIN [Concomitant]
     Route: 065
  15. LISINOPRIL [Concomitant]
     Route: 065
  16. DESIPRAMINE HYDROCHLORIDE [Concomitant]
     Route: 065

REACTIONS (11)
  - ARTERIOVENOUS MALFORMATION [None]
  - CARDIOVASCULAR DISORDER [None]
  - DIVERTICULUM [None]
  - DUODENAL ULCER [None]
  - GASTRIC ULCER [None]
  - GASTRITIS [None]
  - LOWER GASTROINTESTINAL HAEMORRHAGE [None]
  - POLYTRAUMATISM [None]
  - UMBILICAL HERNIA [None]
  - VENTRICULAR HYPERTROPHY [None]
  - WEIGHT DECREASED [None]
